FAERS Safety Report 8214677-6 (Version None)
Quarter: 2012Q1

REPORT INFORMATION
  Report Type: 
  Country: None (occurrence: None)
  Receive Date: 20120316
  Receipt Date: 20120307
  Transmission Date: 20120608
  Serious: Yes (Hospitalization)
  Sender: FDA-Public Use
  Company Number: AU-NAPPMUNDI-USA-2008-0032261

PATIENT
  Sex: Male

DRUGS (6)
  1. NORFLEX [Suspect]
     Indication: PAIN
     Dates: start: 20080206, end: 20080207
  2. MIRTAZAPINE [Concomitant]
  3. DIAZEPAM [Concomitant]
  4. ZOMETA [Concomitant]
     Indication: OSTEOPOROSIS
  5. NORSPAN 10 MG [Suspect]
     Indication: PAIN
     Dosage: 10 MCG, Q1H
     Route: 062
     Dates: start: 20080206, end: 20080207
  6. VENTOLIN [Concomitant]
     Indication: ASTHMA

REACTIONS (5)
  - NAUSEA [None]
  - HYPERHIDROSIS [None]
  - DIZZINESS [None]
  - VOMITING [None]
  - BLOOD PRESSURE DECREASED [None]
